FAERS Safety Report 7670746-0 (Version None)
Quarter: 2011Q3

REPORT INFORMATION
  Report Type: 
  Country: None (occurrence: None)
  Receive Date: 20110803
  Receipt Date: 20110719
  Transmission Date: 20111222
  Serious: Yes (Life-Threatening, Hospitalization, Other)
  Sender: FDA-Public Use
  Company Number: 2011MA009073

PATIENT
  Age: 61 Year
  Sex: Female

DRUGS (1)
  1. DICLOFENAC SODIUM [Suspect]
     Dosage: ;1X; IM
     Route: 030

REACTIONS (10)
  - LOSS OF CONSCIOUSNESS [None]
  - MYOCLONUS [None]
  - METABOLIC ACIDOSIS [None]
  - ANAPHYLACTIC REACTION [None]
  - MYDRIASIS [None]
  - BLOOD PRESSURE INCREASED [None]
  - HEART RATE INCREASED [None]
  - BRADYCARDIA [None]
  - COMA SCALE ABNORMAL [None]
  - CARDIAC ARREST [None]
